FAERS Safety Report 6520743-3 (Version None)
Quarter: 2009Q4

REPORT INFORMATION
  Report Type: 
  Country: None (occurrence: None)
  Receive Date: 20091229
  Receipt Date: 20091223
  Transmission Date: 20100525
  Serious: Yes (Other)
  Sender: FDA-Public Use
  Company Number: GXKR2009KW13819

PATIENT
  Sex: Female

DRUGS (1)
  1. LEVETIRACETAME (NGX) [Suspect]
     Dosage: 42.7 MG/KG/DAY (MAXIMUM DOSE)
     Route: 065

REACTIONS (2)
  - CONDITION AGGRAVATED [None]
  - GRAND MAL CONVULSION [None]
